FAERS Safety Report 25999566 (Version 1)
Quarter: 2025Q4

REPORT INFORMATION
  Report Type: Spontaneous
  Country: EU (occurrence: EU)
  Receive Date: 20251105
  Receipt Date: 20251105
  Transmission Date: 20260117
  Serious: Yes (Other)
  Sender: REGENERON
  Company Number: EU-BAYER-2025A144002

PATIENT
  Age: 87 Year
  Sex: Female

DRUGS (2)
  1. EYLEA [Suspect]
     Active Substance: AFLIBERCEPT
     Indication: Neovascular age-related macular degeneration
     Dosage: UNK, BILLATERALY
     Route: 031
     Dates: start: 2020
  2. EYLEA HD [Suspect]
     Active Substance: AFLIBERCEPT
     Indication: Product used for unknown indication
     Dosage: 8 MG, SOLUTION FOR INJECTION, 114.3 MG/ML
     Route: 031

REACTIONS (2)
  - Keratic precipitates [Recovering/Resolving]
  - Intraocular pressure increased [Unknown]

NARRATIVE: CASE EVENT DATE: 20240101
